FAERS Safety Report 5492587-5 (Version None)
Quarter: 2007Q4

REPORT INFORMATION
  Report Type: 
  Country: None (occurrence: None)
  Receive Date: 20071022
  Receipt Date: 20071010
  Transmission Date: 20080405
  Serious: Yes (Hospitalization, Other)
  Sender: FDA-Public Use
  Company Number: US-PFIZER INC-2007077941

PATIENT
  Sex: Female
  Weight: 54.9 kg

DRUGS (12)
  1. LYRICA [Suspect]
     Indication: HYPOAESTHESIA
     Dates: start: 20070101, end: 20070101
  2. LYRICA [Suspect]
     Indication: PARAESTHESIA
  3. ALLEGRA D 24 HOUR [Suspect]
     Indication: SEASONAL ALLERGY
     Route: 048
     Dates: start: 20030101, end: 20070301
  4. AJMALINE [Concomitant]
  5. DIGOXIN [Concomitant]
     Indication: CARDIAC DISORDER
  6. SOTALOL HYDROCHLORIDE [Concomitant]
     Indication: CARDIAC DISORDER
  7. WARFARIN SODIUM [Concomitant]
  8. VYTORIN [Concomitant]
  9. SYNTHROID [Concomitant]
     Indication: THYROID DISORDER
     Dates: start: 19750101
  10. FUROSEMIDE [Concomitant]
     Indication: FLUID RETENTION
     Dates: start: 20020101
  11. POTASSIUM CHLORIDE [Concomitant]
     Dates: start: 20020101
  12. CARTIA XT [Concomitant]
     Indication: CARDIAC DISORDER

REACTIONS (16)
  - ABDOMINAL PAIN [None]
  - ADHESION [None]
  - CEREBROVASCULAR ACCIDENT [None]
  - CONVULSION [None]
  - CYSTITIS INTERSTITIAL [None]
  - DIZZINESS [None]
  - HEADACHE [None]
  - INCOHERENT [None]
  - LOSS OF CONSCIOUSNESS [None]
  - MALAISE [None]
  - MEDICATION RESIDUE [None]
  - MYOCARDIAL INFARCTION [None]
  - SLEEP DISORDER [None]
  - SPEECH DISORDER [None]
  - URINARY INCONTINENCE [None]
  - VOMITING [None]
